FAERS Safety Report 7739265-7 (Version None)
Quarter: 2011Q3

REPORT INFORMATION
  Report Type: 
  Country: None (occurrence: None)
  Receive Date: 20110909
  Receipt Date: 20110830
  Transmission Date: 20111222
  Serious: Yes (Life-Threatening, Hospitalization)
  Sender: FDA-Public Use
  Company Number: FR-JNJFOC-20110900102

PATIENT
  Age: 57 Year
  Sex: Female

DRUGS (4)
  1. REMICADE [Suspect]
     Dosage: PATIENT WAS HOSPITALISED FOR 40TH INFUSION
     Route: 042
     Dates: start: 20110706
  2. INDOMETHACIN [Concomitant]
     Indication: ANKYLOSING SPONDYLITIS
  3. REMICADE [Suspect]
     Indication: ANKYLOSING SPONDYLITIS
     Route: 042
  4. METHOTREXATE [Concomitant]
     Route: 065
     Dates: start: 20110601

REACTIONS (5)
  - PERIPHERAL ISCHAEMIA [None]
  - RESPIRATORY FAILURE [None]
  - RHABDOMYOLYSIS [None]
  - ENDOCARDITIS ENTEROCOCCAL [None]
  - SEPTIC SHOCK [None]
